FAERS Safety Report 5523557-6 (Version None)
Quarter: 2007Q4

REPORT INFORMATION
  Report Type: 
  Country: None (occurrence: None)
  Receive Date: 20071121
  Receipt Date: 20071115
  Transmission Date: 20080405
  Serious: Yes (Death)
  Sender: FDA-Public Use
  Company Number: BE-JNJFOC-20070903844

PATIENT
  Age: 65 Year
  Sex: Female

DRUGS (1)
  1. IMODIUM [Suspect]
     Indication: INTENTIONAL DRUG MISUSE
     Route: 048

REACTIONS (2)
  - CEREBRAL HAEMORRHAGE [None]
  - INTENTIONAL OVERDOSE [None]
